FAERS Safety Report 5045003-1 (Version None)
Quarter: 2006Q2

REPORT INFORMATION
  Report Type: 
  Country: None (occurrence: None)
  Receive Date: 20060601
  Receipt Date: 20060315
  Transmission Date: 20061013
  Serious: No
  Sender: FDA-Public Use
  Company Number: US200603003979

PATIENT
  Age: 34 Year
  Sex: Female

DRUGS (1)
  1. CYMBALTA [Suspect]
     Dosage: 60 MG
     Dates: start: 20060314, end: 20060314

REACTIONS (4)
  - COGNITIVE DISORDER [None]
  - INSOMNIA [None]
  - MEDICATION ERROR [None]
  - VISUAL DISTURBANCE [None]
